FAERS Safety Report 9163153 (Version 1)
Quarter: 2013Q1

REPORT INFORMATION
  Report Type: Spontaneous
  Country: US (occurrence: None)
  Receive Date: 20130313
  Receipt Date: 20130313
  Transmission Date: 20140127
  Serious: Yes (Hospitalization)
  Sender: FDA-Public Use
  Company Number: None

PATIENT
  Age: 43 Year
  Sex: Female
  Weight: 71.67 kg

DRUGS (1)
  1. EXPAREL [Suspect]
     Indication: POSTOPERATIVE ANALGESIA
     Dosage: 260 MG/200 ML INTRAOP SQ
     Dates: start: 20121221, end: 20121221

REACTIONS (5)
  - Hypersensitivity [None]
  - Erythema [None]
  - Swelling [None]
  - Crepitations [None]
  - Induration [None]
